FAERS Safety Report 7812704-9 (Version None)
Quarter: 2011Q4

REPORT INFORMATION
  Report Type: 
  Country: None (occurrence: None)
  Receive Date: 20111011
  Receipt Date: 20110930
  Transmission Date: 20120403
  Serious: Yes (Other)
  Sender: FDA-Public Use
  Company Number: DSA_47766_2011

PATIENT
  Age: 32 Year
  Sex: Male

DRUGS (5)
  1. ESCITALOPRAM [Suspect]
     Indication: SOCIAL PHOBIA
     Dosage: (10 MG QD, (10 MG QD)
  2. VENLAFAXINE [Suspect]
     Indication: SOCIAL PHOBIA
     Dosage: (75 MG DAILY),(150 MG DAILY), (75 MG DAILY), (150 MG DAILY)
  3. VENLAFAXINE [Suspect]
     Indication: SOCIAL PHOBIA
     Dosage: (75 MG DAILY),(150 MG DAILY), (75 MG DAILY), (150 MG DAILY)
  4. CLONAZEPAM [Concomitant]
  5. OLANZAPINE [Concomitant]

REACTIONS (6)
  - NAUSEA [None]
  - IMPAIRED WORK ABILITY [None]
  - FEAR [None]
  - ACTIVITIES OF DAILY LIVING IMPAIRED [None]
  - ABDOMINAL DISCOMFORT [None]
  - PERSECUTORY DELUSION [None]
